FAERS Safety Report 22003093 (Version 1)
Quarter: 2023Q1

REPORT INFORMATION
  Report Type: Spontaneous
  Country: US (occurrence: US)
  Receive Date: 20230217
  Receipt Date: 20230217
  Transmission Date: 20230418
  Serious: No
  Sender: FDA-Public Use
  Company Number: US-GLAXOSMITHKLINE-USCH2023006982

PATIENT
  Age: 71 Year
  Sex: Female

DRUGS (1)
  1. ALLI [Suspect]
     Active Substance: ORLISTAT
     Indication: Weight control
     Dosage: 60 MG
     Dates: start: 20230211, end: 20230214

REACTIONS (2)
  - Faeces discoloured [Unknown]
  - Diarrhoea [Unknown]
